FAERS Safety Report 9734070 (Version 1)
Quarter: 2013Q4

REPORT INFORMATION
  Report Type: Spontaneous
  Country: US (occurrence: US)
  Receive Date: 20131205
  Receipt Date: 20131205
  Transmission Date: 20140711
  Serious: No
  Sender: FDA-Public Use
  Company Number: US-009507513-1312USA001233

PATIENT
  Sex: Male

DRUGS (1)
  1. CORICIDIN HBP COLD AND FLU [Suspect]
     Indication: HYPERSENSITIVITY
     Dosage: UNK, UNKNOWN
     Route: 048

REACTIONS (2)
  - Expired drug administered [Unknown]
  - Off label use [Unknown]
